FAERS Safety Report 11298479 (Version 1)
Quarter: 2015Q3

REPORT INFORMATION
  Report Type: Spontaneous
  Country: US (occurrence: US)
  Receive Date: 20150722
  Receipt Date: 20150722
  Transmission Date: 20151125
  Serious: No
  Sender: FDA-Public Use
  Company Number: US-ELI_LILLY_AND_COMPANY-US201111002639

PATIENT
  Age: 76 Year
  Sex: Female

DRUGS (1)
  1. EVISTA [Suspect]
     Active Substance: RALOXIFENE HYDROCHLORIDE
     Dosage: 60 MG, QD

REACTIONS (6)
  - Swelling [Recovering/Resolving]
  - Hyperhidrosis [Unknown]
  - Nausea [Unknown]
  - Muscle spasms [Unknown]
  - Hot flush [Unknown]
  - Hypertension [Unknown]
